FAERS Safety Report 14551665 (Version 5)
Quarter: 2018Q3

REPORT INFORMATION
  Report Type: Report from Study
  Country: None (occurrence: US)
  Receive Date: 20180220
  Receipt Date: 20180924
  Transmission Date: 20181010
  Serious: Yes (Other)
  Sender: FDA-Public Use
  Company Number: US-ABBVIE-18K-163-2256436-00

PATIENT
  Age: 56 Year
  Sex: Female

DRUGS (1)
  1. HUMIRA [Suspect]
     Active Substance: ADALIMUMAB
     Indication: CROHN^S DISEASE
     Route: 058

REACTIONS (14)
  - Pulmonary mycosis [Unknown]
  - Diarrhoea [Recovered/Resolved]
  - Polyp [Unknown]
  - Abdominal pain [Unknown]
  - Vitamin B12 deficiency [Unknown]
  - Chronic obstructive pulmonary disease [Unknown]
  - Stress [Unknown]
  - Sinus congestion [Unknown]
  - Respiratory tract congestion [Unknown]
  - Pharyngeal oedema [Unknown]
  - Diarrhoea [Recovered/Resolved]
  - Weight gain poor [Unknown]
  - Throat tightness [Unknown]
  - Hypoaesthesia [Unknown]

NARRATIVE: CASE EVENT DATE: 201802
